FAERS Safety Report 7662693-5 (Version None)
Quarter: 2011Q3

REPORT INFORMATION
  Report Type: 
  Country: None (occurrence: None)
  Receive Date: 20110805
  Receipt Date: 20101004
  Transmission Date: 20111222
  Serious: No
  Sender: FDA-Public Use
  Company Number: US-ABBOTT-10P-163-0670011-00

PATIENT
  Sex: Female
  Weight: 68.1 kg

DRUGS (6)
  1. SIMVASTATIN [Concomitant]
     Indication: PRODUCT USED FOR UNKNOWN INDICATION
  2. VIT E [Concomitant]
     Indication: PRODUCT USED FOR UNKNOWN INDICATION
  3. ZOFLOX [Concomitant]
     Indication: PANIC ATTACK
  4. FISH OIL [Concomitant]
     Indication: PRODUCT USED FOR UNKNOWN INDICATION
  5. VIT C [Concomitant]
     Indication: PRODUCT USED FOR UNKNOWN INDICATION
  6. NIASPAN [Suspect]
     Indication: BLOOD CHOLESTEROL INCREASED
     Dates: start: 20100901, end: 20100906

REACTIONS (11)
  - SKIN BURNING SENSATION [None]
  - CHILLS [None]
  - NAUSEA [None]
  - HEART RATE INCREASED [None]
  - COMPULSIONS [None]
  - ERYTHEMA [None]
  - ABDOMINAL PAIN UPPER [None]
  - URTICARIA [None]
  - EYE SWELLING [None]
  - HYPERTENSION [None]
  - SWELLING FACE [None]
